FAERS Safety Report 4453886-9 (Version None)
Quarter: 2004Q3

REPORT INFORMATION
  Report Type: 
  Country: None (occurrence: None)
  Receive Date: 20040920
  Receipt Date: 20040908
  Transmission Date: 20050211
  Serious: Yes (Hospitalization)
  Sender: FDA-Public Use
  Company Number: US-MERCK-0409USA00629

PATIENT
  Age: 47 Year
  Sex: Male

DRUGS (4)
  1. LIPITOR [Concomitant]
     Route: 065
  2. ZESTRIL [Concomitant]
     Route: 065
  3. VIOXX [Suspect]
     Indication: OSTEOARTHRITIS
     Route: 048
     Dates: start: 20000101
  4. VIOXX [Suspect]
     Route: 048
     Dates: start: 20040701, end: 20040701

REACTIONS (3)
  - CARDIAC ARREST [None]
  - LOSS OF CONSCIOUSNESS [None]
  - ROAD TRAFFIC ACCIDENT [None]
